FAERS Safety Report 17024524 (Version 2)
Quarter: 2019Q4

REPORT INFORMATION
  Report Type: Report from Study
  Country: US (occurrence: US)
  Receive Date: 20191113
  Receipt Date: 20191201
  Transmission Date: 20200122
  Serious: Yes (Hospitalization)
  Sender: FDA-Public Use
  Company Number: US-AGIOS-1910US01435

PATIENT

DRUGS (1)
  1. TIBSOVO [Suspect]
     Active Substance: IVOSIDENIB
     Indication: MYELOPROLIFERATIVE NEOPLASM
     Dosage: 250 MILLIGRAM, QD
     Route: 048
     Dates: start: 20190129, end: 20191114

REACTIONS (4)
  - Off label use [Recovered/Resolved]
  - Therapeutic product effect decreased [Unknown]
  - White blood cell count increased [Not Recovered/Not Resolved]
  - Chemotherapy [Unknown]

NARRATIVE: CASE EVENT DATE: 20190129
